FAERS Safety Report 24210211 (Version 1)
Quarter: 2024Q3

REPORT INFORMATION
  Report Type: Spontaneous
  Country: US (occurrence: None)
  Receive Date: 20240813
  Receipt Date: 20240813
  Transmission Date: 20241017
  Serious: Yes (unspecified)
  Sender: Public
  Company Number: None

PATIENT
  Age: 14 Year
  Sex: Female
  Weight: 74.3 kg

DRUGS (1)
  1. INFLIXIMAB [Suspect]
     Active Substance: INFLIXIMAB
     Dosage: 800 MG ONCE INTRAVENOUS?
     Route: 042
     Dates: start: 20240622, end: 20240622

REACTIONS (7)
  - Urticaria [None]
  - Chest discomfort [None]
  - Abdominal rigidity [None]
  - Infusion related reaction [None]
  - Prescribed overdose [None]
  - Rash [None]
  - Headache [None]

NARRATIVE: CASE EVENT DATE: 20240622
